FAERS Safety Report 5571785-6 (Version None)
Quarter: 2007Q4

REPORT INFORMATION
  Report Type: 
  Country: None (occurrence: None)
  Receive Date: 20071221
  Receipt Date: 20071210
  Transmission Date: 20080405
  Serious: Yes (Hospitalization)
  Sender: FDA-Public Use
  Company Number: B0500154A

PATIENT
  Age: 95 Year
  Sex: Female

DRUGS (7)
  1. PAROXETINE HCL [Suspect]
     Indication: DRUG USE FOR UNKNOWN INDICATION
     Dosage: 20MG PER DAY
     Route: 048
  2. LASILIX [Suspect]
     Dosage: 125MG PER DAY
     Route: 048
  3. ALDACTONE [Suspect]
     Dosage: 12.5MG PER DAY
     Route: 048
  4. KARDEGIC [Suspect]
     Dosage: 300MG PER DAY
     Route: 048
  5. AMLOR [Suspect]
     Dosage: 10MG PER DAY
     Route: 048
  6. OGAST [Suspect]
     Dosage: 15MG PER DAY
     Route: 048
  7. DIFFU K [Suspect]
     Route: 048

REACTIONS (2)
  - GOUT [None]
  - TENOSYNOVITIS [None]
